FAERS Safety Report 9645256 (Version 1)
Quarter: 2013Q4

REPORT INFORMATION
  Report Type: Spontaneous
  Country: US (occurrence: None)
  Receive Date: 20131023
  Receipt Date: 20131023
  Transmission Date: 20140711
  Serious: Yes (Other)
  Sender: FDA-Public Use
  Company Number: 2013AP009134

PATIENT
  Age: 54 Year
  Sex: Male

DRUGS (2)
  1. LITHIUM CARBONATE [Suspect]
  2. OMNIPAQUE [Suspect]
     Indication: COMPUTERISED TOMOGRAM

REACTIONS (10)
  - Pneumonia aspiration [None]
  - Thyrotoxic crisis [None]
  - Tenderness [None]
  - Gait disturbance [None]
  - Agitation [None]
  - Tachycardia [None]
  - Hypertension [None]
  - Hyperthyroidism [None]
  - Thyroiditis [None]
  - Thyroid neoplasm [None]
